FAERS Safety Report 6509454-8 (Version None)
Quarter: 2009Q4

REPORT INFORMATION
  Report Type: 
  Country: None (occurrence: None)
  Receive Date: 20091218
  Receipt Date: 20091218
  Transmission Date: 20100525
  Serious: Yes (Other)
  Sender: FDA-Public Use
  Company Number: None

PATIENT
  Age: 54 Year
  Sex: Female
  Weight: 68.0396 kg

DRUGS (1)
  1. LOTREL [Suspect]
     Indication: HYPERTENSION

REACTIONS (2)
  - BLOOD PRESSURE INADEQUATELY CONTROLLED [None]
  - COUGH [None]
